FAERS Safety Report 20435908 (Version 1)
Quarter: 2022Q1

REPORT INFORMATION
  Report Type: Spontaneous
  Country: US (occurrence: US)
  Receive Date: 20220207
  Receipt Date: 20220207
  Transmission Date: 20220423
  Serious: No
  Sender: FDA-Public Use
  Company Number: US-TEVA-2022-US-2003037

PATIENT
  Age: 63 Year
  Sex: Female

DRUGS (1)
  1. NYSTATIN [Suspect]
     Active Substance: NYSTATIN
     Indication: Candida infection
     Dosage: 100,000 IU/G
     Route: 061
     Dates: start: 202201

REACTIONS (2)
  - Drug ineffective [Unknown]
  - Product quality issue [Unknown]
